FAERS Safety Report 18889739 (Version 1)
Quarter: 2021Q1

REPORT INFORMATION
  Report Type: Spontaneous
  Country: CN (occurrence: CN)
  Receive Date: 20210213
  Receipt Date: 20210213
  Transmission Date: 20210420
  Serious: Yes (Other)
  Sender: FDA-Public Use
  Company Number: CN-UCBSA-2021006312

PATIENT

DRUGS (2)
  1. KEPPRA [Suspect]
     Active Substance: LEVETIRACETAM
     Indication: PRODUCT USED FOR UNKNOWN INDICATION
     Dosage: UNK
  2. KEPPRA [Suspect]
     Active Substance: LEVETIRACETAM
     Dosage: 100 MG/ML

REACTIONS (5)
  - Periodic limb movement disorder [Recovered/Resolved]
  - Somnambulism [Unknown]
  - Tremor [Recovering/Resolving]
  - Product odour abnormal [Unknown]
  - Product taste abnormal [Unknown]
